FAERS Safety Report 7320804-5 (Version None)
Quarter: 2011Q1

REPORT INFORMATION
  Report Type: 
  Country: None (occurrence: None)
  Receive Date: 20110223
  Receipt Date: 20110223
  Transmission Date: 20110831
  Serious: Yes (Other)
  Sender: FDA-Public Use
  Company Number: None

PATIENT
  Age: 35 Year
  Sex: Female
  Weight: 80.7403 kg

DRUGS (2)
  1. COUMADIN [Suspect]
     Indication: PULMONARY EMBOLISM
     Dosage: 2.5 DAILY PO
     Route: 048
     Dates: start: 20110204, end: 20110214
  2. WARFARIN 2.5 [Suspect]
     Indication: PULMONARY EMBOLISM
     Dosage: 2.5 DAILY PO
     Route: 048
     Dates: start: 20110126, end: 20110203

REACTIONS (14)
  - CHEST PAIN [None]
  - DIZZINESS [None]
  - ASTHENIA [None]
  - HEADACHE [None]
  - HEART RATE INCREASED [None]
  - DYSPHAGIA [None]
  - LIP SWELLING [None]
  - NECROSIS [None]
  - HEMIPARESIS [None]
  - MUSCULOSKELETAL PAIN [None]
  - FATIGUE [None]
  - DYSPNOEA [None]
  - CONFUSIONAL STATE [None]
  - SKIN DISCOLOURATION [None]
